FAERS Safety Report 13138950 (Version 1)
Quarter: 2017Q1

REPORT INFORMATION
  Report Type: Spontaneous
  Country: US (occurrence: US)
  Receive Date: 20170123
  Receipt Date: 20170123
  Transmission Date: 20170428
  Serious: Yes (Other)
  Sender: FDA-Public Use
  Company Number: US-TEVA-731465USA

PATIENT
  Sex: Female

DRUGS (1)
  1. ALENDRONATE SODIUM. [Suspect]
     Active Substance: ALENDRONATE SODIUM
     Indication: OSTEOPOROSIS
     Route: 065
     Dates: start: 20161217, end: 20161224

REACTIONS (8)
  - Adverse event [Unknown]
  - Nephritis [Unknown]
  - Pneumonitis [Unknown]
  - Back pain [Unknown]
  - Gastritis [Unknown]
  - Burning sensation [Unknown]
  - Musculoskeletal chest pain [Unknown]
  - Gastric disorder [Unknown]

NARRATIVE: CASE EVENT DATE: 20161224
